FAERS Safety Report 14137487 (Version 2)
Quarter: 2017Q4

REPORT INFORMATION
  Report Type: Spontaneous
  Country: US (occurrence: US)
  Receive Date: 20171027
  Receipt Date: 20171130
  Transmission Date: 20180321
  Serious: Yes (Hospitalization, Other)
  Sender: FDA-Public Use
  Company Number: US-PFIZER INC-2017461654

PATIENT
  Age: 79 Year
  Sex: Female

DRUGS (1)
  1. TOVIAZ [Suspect]
     Active Substance: FESOTERODINE FUMARATE
     Dosage: 8 MG, UNK

REACTIONS (6)
  - Incontinence [Not Recovered/Not Resolved]
  - Bladder spasm [Unknown]
  - Anxiety [Unknown]
  - Gait disturbance [Unknown]
  - Diabetic neuropathy [Unknown]
  - Diabetes mellitus [Unknown]
